FAERS Safety Report 20130272 (Version 1)
Quarter: 2021Q4

REPORT INFORMATION
  Report Type: Spontaneous
  Country: IS (occurrence: IS)
  Receive Date: 20211130
  Receipt Date: 20211130
  Transmission Date: 20220304
  Serious: Yes (Hospitalization)
  Sender: FDA-Public Use
  Company Number: None

PATIENT
  Age: 69 Year
  Sex: Male

DRUGS (4)
  1. PEMETREXED [Suspect]
     Active Substance: PEMETREXED
     Indication: Neoplasm malignant
     Dosage: 950 MILLIGRAM, Q3W,950 MG IV EVERY 3 WEEKS
     Route: 042
     Dates: start: 20210429
  2. CARBOPLATIN [Suspect]
     Active Substance: CARBOPLATIN
     Indication: Neoplasm malignant
     Dosage: 405 MILLIGRAM, Q3W,405 MG / 4AUC EVERY 3 WEEKS
     Dates: start: 20210429
  3. KEYTRUDA [Suspect]
     Active Substance: PEMBROLIZUMAB
     Indication: Neoplasm malignant
     Dosage: 200 MILLIGRAM, Q3W,200 MG 1 X IV EVERY 3 WEEKS
     Route: 042
     Dates: start: 20210429
  4. PEMBROLIZUMAB [Concomitant]
     Active Substance: PEMBROLIZUMAB
     Dosage: UNK

REACTIONS (3)
  - Hyperthyroidism [Recovering/Resolving]
  - Atrial fibrillation [Recovering/Resolving]
  - Renal impairment [Recovering/Resolving]

NARRATIVE: CASE EVENT DATE: 20210819
